FAERS Safety Report 6446956-7 (Version None)
Quarter: 2009Q4

REPORT INFORMATION
  Report Type: 
  Country: None (occurrence: None)
  Receive Date: 20091110
  Receipt Date: 20090929
  Transmission Date: 20100525
  Serious: Yes (Other)
  Sender: FDA-Public Use
  Company Number: 1000009172

PATIENT
  Age: 42 Year
  Sex: Female

DRUGS (16)
  1. SAVELLA [Suspect]
     Indication: FIBROMYALGIA
     Dosage: SEE IMAGE
     Route: 048
     Dates: start: 20090904, end: 20090904
  2. SAVELLA [Suspect]
     Indication: MYOFASCIAL PAIN SYNDROME
     Dosage: SEE IMAGE
     Route: 048
     Dates: start: 20090904, end: 20090904
  3. SAVELLA [Suspect]
     Indication: FIBROMYALGIA
     Dosage: SEE IMAGE
     Route: 048
     Dates: start: 20090905, end: 20090906
  4. SAVELLA [Suspect]
     Indication: MYOFASCIAL PAIN SYNDROME
     Dosage: SEE IMAGE
     Route: 048
     Dates: start: 20090905, end: 20090906
  5. SAVELLA [Suspect]
     Indication: FIBROMYALGIA
     Dosage: SEE IMAGE
     Route: 048
     Dates: start: 20090907, end: 20090910
  6. SAVELLA [Suspect]
     Indication: MYOFASCIAL PAIN SYNDROME
     Dosage: SEE IMAGE
     Route: 048
     Dates: start: 20090907, end: 20090910
  7. SAVELLA [Suspect]
     Indication: FIBROMYALGIA
     Dosage: SEE IMAGE
     Route: 048
     Dates: start: 20090911, end: 20090921
  8. SAVELLA [Suspect]
     Indication: MYOFASCIAL PAIN SYNDROME
     Dosage: SEE IMAGE
     Route: 048
     Dates: start: 20090911, end: 20090921
  9. SAVELLA [Suspect]
     Indication: FIBROMYALGIA
     Dosage: SEE IMAGE
     Route: 048
     Dates: start: 20090922, end: 20090925
  10. SAVELLA [Suspect]
     Indication: MYOFASCIAL PAIN SYNDROME
     Dosage: SEE IMAGE
     Route: 048
     Dates: start: 20090922, end: 20090925
  11. SAVELLA [Suspect]
     Indication: FIBROMYALGIA
     Dosage: SEE IMAGE
     Route: 048
     Dates: start: 20090926, end: 20090927
  12. SAVELLA [Suspect]
     Indication: MYOFASCIAL PAIN SYNDROME
     Dosage: SEE IMAGE
     Route: 048
     Dates: start: 20090926, end: 20090927
  13. SAVELLA [Suspect]
     Indication: FIBROMYALGIA
     Dosage: 12.5 MG (12.5 MG, 1 IN 1 D),ORAL
     Route: 048
     Dates: start: 20090928, end: 20090928
  14. TRAMADOL HCL [Suspect]
     Indication: ARTHRALGIA
     Dosage: 100 MG (50 MG,2-IN 1 D), ORAL
     Route: 048
     Dates: start: 20090501
  15. CLARITIN [Concomitant]
  16. BIRTH CONTROL PILLS (NOS) [Concomitant]

REACTIONS (4)
  - DRUG INTERACTION [None]
  - PARAESTHESIA [None]
  - PRURITUS [None]
  - SEROTONIN SYNDROME [None]
